FAERS Safety Report 7792170-2 (Version None)
Quarter: 2011Q4

REPORT INFORMATION
  Report Type: 
  Country: None (occurrence: None)
  Receive Date: 20111003
  Receipt Date: 20111003
  Transmission Date: 20120403
  Serious: Yes (Other)
  Sender: FDA-Public Use
  Company Number: None

PATIENT
  Sex: Male
  Weight: 20.411 kg

DRUGS (1)
  1. VERAMYST [Suspect]
     Indication: RESPIRATORY DISORDER
     Dosage: 1 SQUIRT EACH NOSTRIL
     Route: 045
     Dates: start: 20110412, end: 20110419

REACTIONS (1)
  - CONVULSION [None]
